FAERS Safety Report 7356862-1 (Version None)
Quarter: 2011Q1

REPORT INFORMATION
  Report Type: 
  Country: None (occurrence: None)
  Receive Date: 20110317
  Receipt Date: 20110309
  Transmission Date: 20110831
  Serious: No
  Sender: FDA-Public Use
  Company Number: US-BIOGENIDEC-2011BI006748

PATIENT
  Sex: Female

DRUGS (1)
  1. TYSABRI [Suspect]
     Indication: MULTIPLE SCLEROSIS
     Route: 042
     Dates: start: 20110201

REACTIONS (10)
  - MUSCLE SPASMS [None]
  - DYSARTHRIA [None]
  - DISTURBANCE IN ATTENTION [None]
  - MUSCULOSKELETAL DISORDER [None]
  - MULTIPLE SCLEROSIS [None]
  - FALL [None]
  - CONFUSIONAL STATE [None]
  - TREMOR [None]
  - RASH [None]
  - PAIN [None]
